FAERS Safety Report 23479621 (Version 1)
Quarter: 2024Q1

REPORT INFORMATION
  Report Type: Spontaneous
  Country: CA (occurrence: CA)
  Receive Date: 20240205
  Receipt Date: 20240205
  Transmission Date: 20240409
  Serious: Yes (Hospitalization)
  Sender: FDA-Public Use
  Company Number: CA-APOTEX-2024AP001682

PATIENT
  Age: 66 Year
  Sex: Female

DRUGS (2)
  1. LITHIUM [Suspect]
     Active Substance: LITHIUM
     Indication: Bipolar I disorder
     Dosage: 12 GRAM
     Route: 048
  2. MELOXICAM [Concomitant]
     Active Substance: MELOXICAM
     Indication: Pain
     Dosage: UNK
     Route: 065

REACTIONS (5)
  - Intentional overdose [Unknown]
  - Hypertension [Unknown]
  - Intention tremor [Unknown]
  - Nausea [Unknown]
  - Ataxia [Unknown]
